FAERS Safety Report 24363810 (Version 1)
Quarter: 2024Q3

REPORT INFORMATION
  Report Type: Spontaneous
  Country: US (occurrence: None)
  Receive Date: 20240925
  Receipt Date: 20240925
  Transmission Date: 20241016
  Serious: Yes (Other)
  Sender: Public
  Company Number: None

PATIENT
  Age: 46 Year
  Sex: Female
  Weight: 98.1 kg

DRUGS (7)
  1. LISINOPRIL [Suspect]
     Active Substance: LISINOPRIL
     Indication: Hypertension
     Dosage: OTHER QUANTITY : 1 TABLET(S);?
     Route: 048
     Dates: start: 20240924, end: 20240925
  2. REXULTI [Concomitant]
     Active Substance: BREXPIPRAZOLE
  3. HYDROXYZINE [Concomitant]
     Active Substance: HYDROXYZINE HYDROCHLORIDE
  4. METOPROLOL [Concomitant]
     Active Substance: METOPROLOL
  5. Womens multivitamin [Concomitant]
  6. Triple Omega [Concomitant]
  7. VITAMIN C [Concomitant]
     Active Substance: ASCORBIC ACID

REACTIONS (10)
  - Psychotic symptom [None]
  - Anxiety [None]
  - Hallucination [None]
  - Disorientation [None]
  - Agitation [None]
  - Insomnia [None]
  - Cognitive disorder [None]
  - Visual impairment [None]
  - Self-injurious ideation [None]
  - Feeling abnormal [None]

NARRATIVE: CASE EVENT DATE: 20240924
